FAERS Safety Report 6707935-5 (Version None)
Quarter: 2010Q2

REPORT INFORMATION
  Report Type: 
  Country: None (occurrence: None)
  Receive Date: 20100429
  Receipt Date: 20100420
  Transmission Date: 20101027
  Serious: Yes (Other)
  Sender: FDA-Public Use
  Company Number: 2010EU001554

PATIENT
  Sex: Female

DRUGS (1)
  1. VESICARE [Suspect]

REACTIONS (5)
  - CONSTIPATION [None]
  - DYSPHAGIA [None]
  - FATIGUE [None]
  - MALAISE [None]
  - VISION BLURRED [None]
